FAERS Safety Report 20728879 (Version 1)
Quarter: 2022Q2

REPORT INFORMATION
  Report Type: Spontaneous
  Country: SA (occurrence: SA)
  Receive Date: 20220420
  Receipt Date: 20220420
  Transmission Date: 20220721
  Serious: Yes (Life-Threatening, Hospitalization, Congenital Anomaly, Other)
  Sender: FDA-Public Use
  Company Number: None

PATIENT
  Age: 2 Month
  Sex: Female

DRUGS (5)
  1. MYCOPHENOLATE MOFETIL [Suspect]
     Active Substance: MYCOPHENOLATE MOFETIL
     Indication: Product used for unknown indication
     Dosage: UNK
     Route: 064
  2. BISOPROLOL [Suspect]
     Active Substance: BISOPROLOL
     Indication: Product used for unknown indication
     Dosage: UNK
     Route: 064
  3. HYDROXYCHLOROQUINE [Suspect]
     Active Substance: HYDROXYCHLOROQUINE
     Indication: Product used for unknown indication
     Dosage: UNK
     Route: 064
  4. PERINDOPRIL [Suspect]
     Active Substance: PERINDOPRIL
     Indication: Product used for unknown indication
     Dosage: UNK
     Route: 064
  5. PREDNISOLONE [Suspect]
     Active Substance: PREDNISOLONE
     Indication: Product used for unknown indication
     Dosage: UNK
     Route: 064

REACTIONS (18)
  - Teratogenicity [Unknown]
  - Ventricular septal defect [Unknown]
  - Hydronephrosis [Unknown]
  - Patent ductus arteriosus [Recovered/Resolved]
  - Respiration abnormal [Unknown]
  - Low birth weight baby [Unknown]
  - Neonatal hypoxia [Recovering/Resolving]
  - Bradycardia [Unknown]
  - Dysmorphism [Unknown]
  - Microtia [Unknown]
  - Hypertelorism [Unknown]
  - Kidney malformation [Unknown]
  - Nasal disorder [Unknown]
  - Multiple congenital abnormalities [Unknown]
  - Cleft lip and palate [Unknown]
  - Micrognathia [Unknown]
  - Coloboma [Unknown]
  - Foetal exposure during pregnancy [Unknown]
